FAERS Safety Report 4844640-4 (Version None)
Quarter: 2005Q4

REPORT INFORMATION
  Report Type: 
  Country: None (occurrence: None)
  Receive Date: 20051129
  Receipt Date: 20051108
  Transmission Date: 20060501
  Serious: Yes (Other)
  Sender: FDA-Public Use
  Company Number: NL200511002164

PATIENT
  Sex: Female

DRUGS (1)
  1. STRATTERA(ATOMOXETINE HYDROCHLORIDE UNKNOWN MANUFACTURER) UNKNOWN [Suspect]
     Indication: ATTENTION DEFICIT/HYPERACTIVITY DISORDER
     Dosage: 80 MG

REACTIONS (1)
  - SUICIDAL IDEATION [None]
